FAERS Safety Report 11481200 (Version 1)
Quarter: 2015Q3

REPORT INFORMATION
  Report Type: Spontaneous
  Country: US (occurrence: US)
  Receive Date: 20150909
  Receipt Date: 20150909
  Transmission Date: 20151125
  Serious: No
  Sender: FDA-Public Use
  Company Number: US-BAYER-2015-417745

PATIENT
  Age: 80 Year
  Sex: Female
  Weight: 72.56 kg

DRUGS (3)
  1. ALEVE [Suspect]
     Active Substance: NAPROXEN SODIUM
     Indication: BLOOD PRESSURE ABNORMAL
     Dosage: UNK DF, UNK
  2. LIDOCAIN [Concomitant]
     Active Substance: LIDOCAINE
  3. LYRICA [Concomitant]
     Active Substance: PREGABALIN
     Indication: HERPES ZOSTER

REACTIONS (4)
  - Hypoaesthesia oral [Not Recovered/Not Resolved]
  - Dizziness [Not Recovered/Not Resolved]
  - Vision blurred [Not Recovered/Not Resolved]
  - Product use issue [None]
